FAERS Safety Report 14605283 (Version 1)
Quarter: 2018Q1

REPORT INFORMATION
  Report Type: Spontaneous
  Country: US (occurrence: US)
  Receive Date: 20180306
  Receipt Date: 20180306
  Transmission Date: 20180509
  Serious: No
  Sender: FDA-Public Use
  Company Number: US-TARO-2017TAR00778

PATIENT
  Age: 71 Year
  Sex: Female
  Weight: 68.27 kg

DRUGS (2)
  1. TERCONAZOLE VAGINAL CREAM 0.4% [Suspect]
     Active Substance: TERCONAZOLE
     Indication: CANDIDA INFECTION
     Dosage: 1 DOSAGE UNITS, 1X/DAY AT NIGHT
     Route: 067
     Dates: start: 20170907
  2. TERCONAZOLE VAGINAL CREAM 0.8% [Suspect]
     Active Substance: TERCONAZOLE
     Indication: CANDIDA INFECTION
     Dosage: 1 DOSAGE UNITS, 1X/DAY AT NIGHT
     Route: 067
     Dates: start: 20170908

REACTIONS (2)
  - Vulvovaginal discomfort [Recovered/Resolved]
  - Product quality issue [Recovered/Resolved]

NARRATIVE: CASE EVENT DATE: 201709
